FAERS Safety Report 7147261-6 (Version None)
Quarter: 2010Q4

REPORT INFORMATION
  Report Type: 
  Country: None (occurrence: None)
  Receive Date: 20101209
  Receipt Date: 20080220
  Transmission Date: 20110411
  Serious: Yes (Death, Hospitalization)
  Sender: FDA-Public Use
  Company Number: US-ACTELION-A-NJ2008-19666

PATIENT

DRUGS (15)
  1. ILOPROST INHALATION SOLUTION UNKNOWN US [Suspect]
     Indication: PULMONARY ARTERIAL HYPERTENSION
     Route: 055
     Dates: start: 20080218, end: 20080101
  2. ILOPROST INHALATION SOLUTION UNKNOWN US [Suspect]
     Dosage: 2.5 UG, QID
     Route: 055
     Dates: start: 20080101
  3. TRACLEER [Concomitant]
     Indication: PULMONARY ARTERIAL HYPERTENSION
     Dosage: 125 MG, BID
     Route: 048
     Dates: start: 20060131
  4. SPIRONOLACTONE [Concomitant]
  5. ALLOPURINOL [Concomitant]
  6. ASPIRIN [Concomitant]
  7. COREG [Concomitant]
  8. DUONEB [Concomitant]
  9. FEOSOL [Concomitant]
  10. LASIX [Concomitant]
  11. MUCINEX [Concomitant]
  12. SPIRIVA [Concomitant]
  13. COUMADIN [Concomitant]
  14. SYNTHROID [Concomitant]
  15. ADVAIR [Concomitant]

REACTIONS (2)
  - DEATH [None]
  - OEDEMA PERIPHERAL [None]
